FAERS Safety Report 8764431 (Version 1)
Quarter: 2012Q4

REPORT INFORMATION
  Report Type: Report from Study
  Country: US (occurrence: US)
  Receive Date: 20120831
  Receipt Date: 20120831
  Transmission Date: 20130627
  Serious: Yes (Hospitalization)
  Sender: FDA-Public Use
  Company Number: US-ABBOTT-12P-163-0972135-00

PATIENT
  Age: 67 None
  Sex: Female
  Weight: 74 kg

DRUGS (11)
  1. HUMIRA 40 MG/0.8 ML PEN [Suspect]
     Indication: CROHN^S DISEASE
  2. NEXIUM [Suspect]
     Indication: DYSPEPSIA
  3. NITROGLYCERIN [Suspect]
     Indication: PRODUCT USED FOR UNKNOWN INDICATION
     Route: 060
  4. PREDNISONE [Concomitant]
     Indication: ASTHMA
  5. PREDNISONE [Concomitant]
     Indication: CROHN^S DISEASE
  6. PURINETHOL [Concomitant]
     Indication: CROHN^S DISEASE
  7. DULERA [Concomitant]
     Indication: ASTHMA
  8. WELLBUTRIN [Concomitant]
     Indication: DEPRESSION
  9. CELEXA [Concomitant]
     Indication: DEPRESSION
  10. CEFPODOXIME [Concomitant]
     Indication: CYSTITIS NONINFECTIVE
     Dates: start: 2007
  11. IMMODIUM [Concomitant]
     Indication: CROHN^S DISEASE

REACTIONS (12)
  - Dizziness [Not Recovered/Not Resolved]
  - Fall [Not Recovered/Not Resolved]
  - Head injury [Not Recovered/Not Resolved]
  - Blood potassium decreased [Unknown]
  - Craniocerebral injury [Not Recovered/Not Resolved]
  - Contusion [Not Recovered/Not Resolved]
  - Arthralgia [Not Recovered/Not Resolved]
  - Amnesia [Not Recovered/Not Resolved]
  - Laceration [Recovered/Resolved]
  - Headache [Not Recovered/Not Resolved]
  - Chest discomfort [Not Recovered/Not Resolved]
  - Dyspepsia [Not Recovered/Not Resolved]
